FAERS Safety Report 15519019 (Version 2)
Quarter: 2021Q4

REPORT INFORMATION
  Report Type: Spontaneous
  Country: FR (occurrence: FR)
  Receive Date: 20181017
  Receipt Date: 20211102
  Transmission Date: 20220303
  Serious: Yes (Hospitalization)
  Sender: FDA-Public Use
  Company Number: None

PATIENT
  Age: 24 Year
  Sex: Female
  Weight: 55 kg

DRUGS (10)
  1. LOXAPINE [Suspect]
     Active Substance: LOXAPINE
     Indication: Mental disorder
     Route: 048
     Dates: start: 20180822, end: 20180909
  2. LORAZEPAM [Suspect]
     Active Substance: LORAZEPAM
     Indication: Mental disorder
     Route: 048
     Dates: start: 20180907, end: 20180914
  3. FLUOXETINE [Suspect]
     Active Substance: FLUOXETINE HYDROCHLORIDE
     Indication: Mental disorder
     Route: 048
     Dates: start: 20180822, end: 20180914
  4. VALIUM [Suspect]
     Active Substance: DIAZEPAM
     Indication: Mental disorder
     Route: 048
     Dates: start: 20180905, end: 20180914
  5. MOVICOL [Suspect]
     Active Substance: POLYETHYLENE GLYCOL 3350\POTASSIUM CHLORIDE\SODIUM BICARBONATE\SODIUM CHLORIDE
     Indication: Constipation
     Route: 048
     Dates: start: 20180822, end: 20180914
  6. TRIMEPRAZINE [Suspect]
     Active Substance: TRIMEPRAZINE
     Indication: Mental disorder
     Dosage: UNIT DOSE: 30 [DRP]
     Route: 048
     Dates: start: 20180822, end: 20180822
  7. TROPATEPINE HYDROCHLORIDE [Suspect]
     Active Substance: TROPATEPINE HYDROCHLORIDE
     Indication: Mental disorder
     Route: 048
     Dates: start: 20180822, end: 20180914
  8. ETHINYL ESTRADIOL\LEVONORGESTREL [Suspect]
     Active Substance: ETHINYL ESTRADIOL\LEVONORGESTREL
     Indication: Contraception
     Route: 048
     Dates: start: 20180829, end: 20180913
  9. ZUCLOPENTHIXOL [Suspect]
     Active Substance: ZUCLOPENTHIXOL
     Indication: Mental disorder
     Route: 048
     Dates: start: 20180822, end: 20180911
  10. FUCIDINE [Concomitant]
     Indication: Skin infection
     Route: 003
     Dates: start: 20180905, end: 20180911

REACTIONS (1)
  - Hepatitis acute [Recovered/Resolved]

NARRATIVE: CASE EVENT DATE: 20180909
